FAERS Safety Report 6679055-X (Version None)
Quarter: 2010Q2

REPORT INFORMATION
  Report Type: 
  Country: None (occurrence: None)
  Receive Date: 20100413
  Receipt Date: 20100403
  Transmission Date: 20101027
  Serious: Yes (Hospitalization)
  Sender: FDA-Public Use
  Company Number: PHHY2010MX20815

PATIENT
  Sex: Female

DRUGS (1)
  1. DIOVAN HCT [Suspect]
     Indication: HYPERTENSION
     Dosage: 160/25 MG , 1 TABLET/DAY
     Dates: start: 20080401

REACTIONS (3)
  - AGGRESSION [None]
  - CEREBRAL HAEMORRHAGE [None]
  - DRY MOUTH [None]
